FAERS Safety Report 16900707 (Version 1)
Quarter: 2019Q4

REPORT INFORMATION
  Report Type: Spontaneous
  Country: US (occurrence: US)
  Receive Date: 20190816
  Receipt Date: 20190816
  Transmission Date: 20200122
  Serious: No
  Sender: FDA-Public Use
  Company Number: None

PATIENT
  Age: 62 Year
  Sex: Male
  Weight: 63.5 kg

DRUGS (1)
  1. TADALAFIL 5MG TAB TEVA [Suspect]
     Active Substance: TADALAFIL
     Indication: BLOOD PRESSURE MEASUREMENT
     Route: 048
     Dates: start: 20190728

REACTIONS (2)
  - Drug dependence [None]
  - Dizziness [None]

NARRATIVE: CASE EVENT DATE: 20190808
